FAERS Safety Report 7919847-X (Version None)
Quarter: 2011Q4

REPORT INFORMATION
  Report Type: 
  Country: None (occurrence: None)
  Receive Date: 20111117
  Receipt Date: 20111108
  Transmission Date: 20120403
  Serious: Yes (Other)
  Sender: FDA-Public Use
  Company Number: US-JNJFOC-20111005921

PATIENT
  Sex: Female

DRUGS (1)
  1. LISTERINE TOTAL CARE PLUS WHITENING [Suspect]
     Indication: DENTAL DISORDER PROPHYLAXIS
     Dosage: 1/2 INCH ON THE BOTTOM OF A PAPER CUP.
     Route: 048
     Dates: start: 20110930, end: 20111004

REACTIONS (3)
  - APPLICATION SITE PAIN [None]
  - SIALOADENITIS [None]
  - PRODUCT QUALITY ISSUE [None]
